FAERS Safety Report 5874740-1 (Version None)
Quarter: 2008Q3

REPORT INFORMATION
  Report Type: 
  Country: None (occurrence: None)
  Receive Date: 20080909
  Receipt Date: 20080909
  Transmission Date: 20090109
  Serious: Yes (Death)
  Sender: FDA-Public Use
  Company Number: None

PATIENT
  Age: 56 Year
  Sex: Male
  Weight: 68.0396 kg

DRUGS (2)
  1. HEPARIN [Suspect]
     Indication: ROAD TRAFFIC ACCIDENT
     Dates: start: 20060807, end: 20060814
  2. HEPARIN [Suspect]
     Indication: THROMBOSIS PROPHYLAXIS
     Dates: start: 20060807, end: 20060814

REACTIONS (3)
  - CARDIAC ARREST [None]
  - CEREBRAL HAEMORRHAGE [None]
  - CEREBROVASCULAR ACCIDENT [None]
